FAERS Safety Report 7375831-9 (Version None)
Quarter: 2011Q1

REPORT INFORMATION
  Report Type: 
  Country: None (occurrence: None)
  Receive Date: 20110325
  Receipt Date: 20110323
  Transmission Date: 20110831
  Serious: Yes (Death)
  Sender: FDA-Public Use
  Company Number: A0902299A

PATIENT
  Age: 59 Year
  Sex: Male

DRUGS (1)
  1. AVANDAMET [Suspect]
     Route: 048
     Dates: start: 20070201, end: 20080828

REACTIONS (2)
  - CARDIOVASCULAR DISORDER [None]
  - CARDIAC ARREST [None]
